FAERS Safety Report 7450643-6 (Version None)
Quarter: 2011Q2

REPORT INFORMATION
  Report Type: 
  Country: None (occurrence: None)
  Receive Date: 20110422
  Receipt Date: 20110412
  Transmission Date: 20111010
  Serious: Yes (Hospitalization)
  Sender: FDA-Public Use
  Company Number: 1000018969

PATIENT
  Age: 73 Year
  Sex: Female
  Weight: 52 kg

DRUGS (5)
  1. SALMETEROL W/ FLUTICASONE (SALMETEROL, FLUTICASONE) (SALMETEROL, FLUTI [Concomitant]
  2. DALIRESP [Suspect]
     Indication: LUNG DISORDER
     Dosage: 500 MCG (500 MCG,1 IN 1 D),ORAL
     Route: 048
     Dates: start: 20101119, end: 20101126
  3. VENTOLIN [Concomitant]
  4. SERETIDE (SALMETEROL, FLUTICASONE) (SALMETEROL, FLUTICASONE) [Concomitant]
  5. TIOTROPIUM (TIOTROPIUM) [Concomitant]

REACTIONS (3)
  - SOMNOLENCE [None]
  - DIARRHOEA [None]
  - DYSPNOEA [None]
